FAERS Safety Report 16174540 (Version 2)
Quarter: 2019Q2

REPORT INFORMATION
  Report Type: Spontaneous
  Country: GB (occurrence: GB)
  Receive Date: 20190409
  Receipt Date: 20190412
  Transmission Date: 20190711
  Serious: Yes (Other)
  Sender: FDA-Public Use
  Company Number: GB-PFIZER INC-2019147917

PATIENT
  Age: 40 Year
  Sex: Female

DRUGS (8)
  1. METHYLPREDNISOLONE. [Suspect]
     Active Substance: METHYLPREDNISOLONE
     Indication: LIVER TRANSPLANT REJECTION
     Dosage: 20 MG, 1X/DAY (ON POSTOPERATIVEDAY (POD) 7)
     Route: 048
     Dates: start: 2018
  2. MYCOPHENOLATE MOFETIL. [Suspect]
     Active Substance: MYCOPHENOLATE MOFETIL
     Indication: IMMUNOSUPPRESSANT DRUG THERAPY
     Dosage: 500 MG, 2X/DAY (FROM POD 4)
     Route: 048
     Dates: start: 201807
  3. METHYLPREDNISOLONE SODIUM SUCCINATE. [Suspect]
     Active Substance: METHYLPREDNISOLONE SODIUM SUCCINATE
     Indication: IMMUNOSUPPRESSANT DRUG THERAPY
     Dosage: 1 G, 1X/DAY (HIGH DOSE-STEROID REGIMEN, LASTING FROM POD 12 TO POD 15)
     Route: 042
     Dates: start: 2018
  4. TACROLIMUS. [Suspect]
     Active Substance: TACROLIMUS
     Indication: IMMUNOSUPPRESSANT DRUG THERAPY
     Dosage: UNK (STARTING FROM POD 7)
     Route: 048
     Dates: start: 2018
  5. BASILIXIMAB [Suspect]
     Active Substance: BASILIXIMAB
     Indication: IMMUNOSUPPRESSANT DRUG THERAPY
     Dosage: UNK (ON POD 0 AND POD 4)
     Route: 042
     Dates: start: 201807
  6. METHYLPREDNISOLONE. [Suspect]
     Active Substance: METHYLPREDNISOLONE
     Indication: IMMUNOSUPPRESSANT DRUG THERAPY
  7. METHYLPREDNISOLONE SODIUM SUCCINATE. [Suspect]
     Active Substance: METHYLPREDNISOLONE SODIUM SUCCINATE
     Indication: LIVER TRANSPLANT REJECTION
     Dosage: 1 G, 1X/DAY (FROM THE DAY OF OLTX)
     Route: 042
     Dates: start: 201807
  8. MYCOPHENOLATE MOFETIL. [Suspect]
     Active Substance: MYCOPHENOLATE MOFETIL
     Dosage: 1 G, 2X/DAY (FROM POD 6 ONWARDS)
     Route: 048
     Dates: start: 2018

REACTIONS (2)
  - Herpes simplex [Recovered/Resolved]
  - Herpes simplex hepatitis [Recovered/Resolved]

NARRATIVE: CASE EVENT DATE: 2018
